FAERS Safety Report 9670735 (Version 1)
Quarter: 2013Q4

REPORT INFORMATION
  Report Type: Spontaneous
  Country: US (occurrence: US)
  Receive Date: 20131106
  Receipt Date: 20131106
  Transmission Date: 20140711
  Serious: No
  Sender: FDA-Public Use
  Company Number: US-ENDO PHARMACEUTICALS INC.-HYDR20120011

PATIENT
  Age: 53 Year
  Sex: Female

DRUGS (1)
  1. HYDROCORTISONE TABLETS 10MG [Suspect]
     Indication: ADRENAL INSUFFICIENCY
     Route: 048
     Dates: start: 201210

REACTIONS (2)
  - Blister [Not Recovered/Not Resolved]
  - Pruritus [Not Recovered/Not Resolved]
